FAERS Safety Report 15941960 (Version 1)
Quarter: 2019Q1

REPORT INFORMATION
  Report Type: Spontaneous
  Country: CL (occurrence: CL)
  Receive Date: 20190211
  Receipt Date: 20190211
  Transmission Date: 20190417
  Serious: Yes (Disabling)
  Sender: FDA-Public Use
  Company Number: None

PATIENT
  Age: 44 Year
  Sex: Male
  Weight: 74 kg

DRUGS (2)
  1. SIMPONI [Suspect]
     Active Substance: GOLIMUMAB
     Indication: ARTHRITIS
     Dosage: ?          OTHER FREQUENCY:EACH MONTH;?
     Route: 058
     Dates: start: 20160308, end: 20180531
  2. SIMPONI [Suspect]
     Active Substance: GOLIMUMAB
     Indication: ANKYLOSING SPONDYLITIS
     Dosage: ?          OTHER FREQUENCY:EACH MONTH;?
     Route: 058
     Dates: start: 20160308, end: 20180531

REACTIONS (2)
  - Tinnitus [None]
  - Guillain-Barre syndrome [None]

NARRATIVE: CASE EVENT DATE: 20180514
